FAERS Safety Report 6013851-7 (Version None)
Quarter: 2008Q4

REPORT INFORMATION
  Report Type: 
  Country: None (occurrence: None)
  Receive Date: 20081218
  Receipt Date: 20081218
  Transmission Date: 20090506
  Serious: Yes (Other)
  Sender: FDA-Public Use
  Company Number: None

PATIENT
  Sex: Female
  Weight: 74.3899 kg

DRUGS (3)
  1. KEPPRA [Suspect]
     Dosage: PO
     Route: 048
  2. PAMELOR [Concomitant]
  3. ASPIRIN [Concomitant]

REACTIONS (4)
  - CONTUSION [None]
  - LYMPHADENOPATHY [None]
  - PETECHIAE [None]
  - RASH [None]
